FAERS Safety Report 5551691-3 (Version None)
Quarter: 2007Q4

REPORT INFORMATION
  Report Type: 
  Country: None (occurrence: None)
  Receive Date: 20071129
  Receipt Date: 20070613
  Transmission Date: 20080405
  Serious: Yes (Other)
  Sender: FDA-Public Use
  Company Number: US200608005874

PATIENT
  Age: 53 Year
  Sex: Male
  Weight: 120.2 kg

DRUGS (5)
  1. ZYPREXA [Suspect]
     Indication: SCHIZOPHRENIA
     Dosage: 10 MG, 15 MG, 20 MG, 20 MG
     Dates: start: 19990721, end: 20010522
  2. ZYPREXA [Suspect]
     Indication: SCHIZOPHRENIA
     Dosage: 10 MG, 15 MG, 20 MG, 20 MG
     Dates: start: 20010523, end: 20010719
  3. ZYPREXA [Suspect]
     Indication: SCHIZOPHRENIA
     Dosage: 10 MG, 15 MG, 20 MG, 20 MG
     Dates: start: 20010720, end: 20040608
  4. ZYPREXA [Suspect]
     Indication: SCHIZOPHRENIA
     Dosage: 10 MG, 15 MG, 20 MG, 20 MG
     Dates: start: 20050825, end: 20060208
  5. DEPAKOTE [Concomitant]

REACTIONS (3)
  - DIABETIC NEUROPATHY [None]
  - TYPE 1 DIABETES MELLITUS [None]
  - WEIGHT INCREASED [None]
